FAERS Safety Report 15690916 (Version 2)
Quarter: 2018Q4

REPORT INFORMATION
  Report Type: Spontaneous
  Country: US (occurrence: US)
  Receive Date: 20181205
  Receipt Date: 20181220
  Transmission Date: 20190205
  Serious: Yes (Other)
  Sender: FDA-Public Use
  Company Number: US-SA-2018SA328183

PATIENT
  Sex: Female

DRUGS (17)
  1. TAGAMET [CIMETIDINE HYDROCHLORIDE] [Concomitant]
     Dosage: 300 MG, UNK
     Route: 065
     Dates: start: 20091105, end: 20091105
  2. TAGAMET [CIMETIDINE HYDROCHLORIDE] [Concomitant]
     Dosage: 300 MG, UNK
     Dates: start: 20091125, end: 20091125
  3. CARBOPLATIN. [Concomitant]
     Active Substance: CARBOPLATIN
     Dosage: 840 MG, UNK
     Route: 065
     Dates: start: 20091105, end: 20091105
  4. CARBOPLATIN. [Concomitant]
     Active Substance: CARBOPLATIN
     Dosage: 710 MG, UNK
     Dates: start: 20091216, end: 20091216
  5. BENADRYL [Concomitant]
     Active Substance: DIPHENHYDRAMINE HYDROCHLORIDE
     Dosage: 50 MG, UNK
     Dates: start: 20091125, end: 20091125
  6. HEPARIN [Concomitant]
     Active Substance: HEPARIN SODIUM
  7. TAXOTERE [Suspect]
     Active Substance: DOCETAXEL
     Dosage: 120 MG, UNK
     Route: 042
     Dates: start: 20100106, end: 20100106
  8. BENADRYL [Concomitant]
     Active Substance: DIPHENHYDRAMINE HYDROCHLORIDE
     Dosage: 25 MG, UNK
     Route: 065
     Dates: start: 20091105, end: 20091105
  9. CARBOPLATIN. [Concomitant]
     Active Substance: CARBOPLATIN
     Dosage: 765 MG, UNK
     Route: 065
     Dates: start: 20091125, end: 20091125
  10. CARBOPLATIN. [Concomitant]
     Active Substance: CARBOPLATIN
     Dosage: 710 MG, UNK
     Dates: start: 20100106, end: 20100106
  11. TAXOTERE [Suspect]
     Active Substance: DOCETAXEL
     Dosage: 120 MG, UNK
     Route: 042
     Dates: start: 20100218, end: 20100218
  12. TAXOTERE [Suspect]
     Active Substance: DOCETAXEL
     Dosage: 120 MG, UNK
     Route: 042
     Dates: start: 20091105, end: 20091105
  13. PEPCID [ALUMINIUM HYDROXIDE;MAGNESIUM TRISILICATE;SODIUM ALGINATE] [Concomitant]
     Dosage: 20 MG, UNK
     Route: 042
     Dates: start: 20091216, end: 20091216
  14. CARBOPLATIN. [Concomitant]
     Active Substance: CARBOPLATIN
     Dosage: 865 MG, UNK
     Dates: start: 20100218, end: 20100218
  15. PEPCID [ALUMINIUM HYDROXIDE;MAGNESIUM TRISILICATE;SODIUM ALGINATE] [Concomitant]
     Dosage: 20 MG, UNK
     Route: 042
     Dates: start: 20100218, end: 20100218
  16. TAXOTERE [Suspect]
     Active Substance: DOCETAXEL
     Dosage: 120 MG, UNK
     Route: 042
     Dates: start: 20091125, end: 20091125
  17. TAXOTERE [Suspect]
     Active Substance: DOCETAXEL
     Dosage: 120 MG, UNK
     Route: 042
     Dates: start: 20091216, end: 20091216

REACTIONS (1)
  - Alopecia [Not Recovered/Not Resolved]
